FAERS Safety Report 9517612 (Version 1)
Quarter: 2013Q3

REPORT INFORMATION
  Report Type: Spontaneous
  Country: US (occurrence: US)
  Receive Date: 20130912
  Receipt Date: 20130912
  Transmission Date: 20140515
  Serious: No
  Sender: FDA-Public Use
  Company Number: US-009507513-1309USA004447

PATIENT
  Age: 63 Year
  Sex: Female

DRUGS (3)
  1. PRINIVIL [Suspect]
     Route: 048
  2. VICTOZA [Concomitant]
  3. CARDIZEM [Concomitant]

REACTIONS (2)
  - Angioedema [Unknown]
  - Rash [Unknown]
